FAERS Safety Report 9306594 (Version 2)
Quarter: 2013Q2

REPORT INFORMATION
  Report Type: Spontaneous
  Country: US (occurrence: US)
  Receive Date: 20130523
  Receipt Date: 20130621
  Transmission Date: 20140414
  Serious: Yes (Death, Hospitalization)
  Sender: FDA-Public Use
  Company Number: US-INCYTE CORPORATION-2013IN000962

PATIENT
  Sex: Male
  Weight: 91.6 kg

DRUGS (15)
  1. JAKAFI [Suspect]
     Indication: MYELODYSPLASTIC SYNDROME
     Dosage: 15 MG, BID
     Route: 048
     Dates: start: 20130425, end: 20130506
  2. ALLOPURINOL [Concomitant]
     Dosage: 300 MG, QD
     Route: 048
  3. ASPIRIN [Concomitant]
     Indication: PAIN
     Dosage: 650 MG, BID
     Route: 048
  4. COLCHICINE [Concomitant]
     Indication: GOUT
     Dosage: 0.6 MG, PRN
     Route: 048
  5. DIGOXIN [Concomitant]
     Dosage: 125 MCG, 1 TABLET ALTERNATING WITH 2 TABLETS DAILY
     Route: 048
  6. FERROUS SULFATE [Concomitant]
     Dosage: 325 MG, BID
     Route: 048
  7. FISH OIL [Concomitant]
     Dosage: TWICE DAILY
     Route: 048
  8. LEVOTHYROXINE [Concomitant]
     Dosage: 50 MCG, QD
     Route: 048
  9. NYSTATIN [Concomitant]
     Dosage: 100,000 UNIT/ML ORAL 5 ML SWISH AND SWALLOW THREE TIMES DAILY AS NEEDED
     Route: 048
  10. OMEPRAZOLE [Concomitant]
     Dosage: 40 MG, QD
     Route: 048
  11. SERTRALINE [Concomitant]
     Dosage: 50 MG, QD
     Route: 048
  12. VITAMIN D [Concomitant]
     Dosage: 2000 IU, BID
     Route: 048
  13. ZYRTEC [Concomitant]
     Dosage: 10 MG, QD
     Route: 048
  14. WARFARIN [Concomitant]
     Dosage: 5 MG, QD
     Route: 048
  15. DILTIAZEM HCL [Concomitant]
     Dosage: 300 MG, QD
     Route: 048

REACTIONS (1)
  - Atrial fibrillation [Fatal]
